FAERS Safety Report 5302847-6 (Version None)
Quarter: 2007Q1

REPORT INFORMATION
  Report Type: 
  Country: None (occurrence: None)
  Receive Date: 20070329
  Receipt Date: 20070329
  Transmission Date: 20070707
  Serious: Yes (Other)
  Sender: FDA-Public Use
  Company Number: None

PATIENT
  Age: 60 Year
  Sex: Male
  Weight: 83.9154 kg

DRUGS (8)
  1. GAMMAGARD S/D [Suspect]
     Indication: IMMUNODEFICIENCY COMMON VARIABLE
     Dosage: 35 GM IV
     Route: 042
     Dates: start: 20070327
  2. GAMMAGARD S/D [Suspect]
     Dosage: Q 3 WEEKS
     Dates: start: 20070327
  3. ATENOLOL [Concomitant]
  4. HYDROCHLOROTHIAZIDE [Concomitant]
  5. ASPIRIN [Concomitant]
  6. LIPITOR [Concomitant]
  7. BENADRYL [Concomitant]
  8. IMMUNE GLOBULIN INTRAVENOUS (HUMAN) [Concomitant]

REACTIONS (2)
  - ARTHRALGIA [None]
  - HEADACHE [None]
